FAERS Safety Report 25984642 (Version 1)
Quarter: 2025Q4

REPORT INFORMATION
  Report Type: Spontaneous
  Country: EU (occurrence: EU)
  Receive Date: 20251031
  Receipt Date: 20251031
  Transmission Date: 20260117
  Serious: Yes (Hospitalization, Other)
  Sender: TEVA
  Company Number: EU-EMB-M202401936-1

PATIENT
  Age: 0 Day
  Sex: Female
  Weight: 1.88 kg

DRUGS (5)
  1. METOPROLOL [Suspect]
     Active Substance: METOPROLOL
     Indication: Arrhythmia
     Dosage: FURTHER REDUCTION TO 95 MG/D (1/2-0-1/2) FROM GW 32 UNTIL DELIVERY
     Route: 064
     Dates: start: 202407, end: 202408
  2. METOPROLOL [Suspect]
     Active Substance: METOPROLOL
     Indication: Arrhythmia
     Dosage: UNTIL APPROXIMATELY GW 11
     Route: 064
     Dates: start: 202312, end: 202402
  3. METOPROLOL [Suspect]
     Active Substance: METOPROLOL
     Indication: Arrhythmia
     Dosage: REDUCED DOSAGE: 142.5 MG/D (1/2-0-1) FROM APPROXIMATELY GW 11 TO 32
     Route: 064
     Dates: start: 202402, end: 202407
  4. BOOSTRIX [Concomitant]
     Active Substance: TETANUS TOXOID, REDUCED DIPHTHERIA TOXOID AND ACELLULAR PERTUSSIS VACCINE ADSORBED, TDAP
     Indication: Immunisation
     Route: 064
     Dates: start: 202407, end: 202407
  5. DUPIXENT [Concomitant]
     Active Substance: DUPILUMAB
     Indication: Neurodermatitis
     Dosage: UNTIL APPROXIMATELY GW 11
     Route: 064

REACTIONS (5)
  - Bradycardia neonatal [Recovered/Resolved]
  - Foetal exposure during pregnancy [Unknown]
  - Small for dates baby [Recovered/Resolved]
  - Infantile apnoea [Recovered/Resolved]
  - Neonatal hypoxia [Recovered/Resolved]

NARRATIVE: CASE EVENT DATE: 20240801
